FAERS Safety Report 7712921-2 (Version None)
Quarter: 2011Q3

REPORT INFORMATION
  Report Type: 
  Country: None (occurrence: None)
  Receive Date: 20110826
  Receipt Date: 20110818
  Transmission Date: 20111222
  Serious: Yes (Other)
  Sender: FDA-Public Use
  Company Number: PHEH2011US02049

PATIENT
  Sex: Female
  Weight: 56.689 kg

DRUGS (2)
  1. HYDROXYUREA [Interacting]
  2. EXJADE [Suspect]
     Indication: SICKLE CELL ANAEMIA
     Dosage: 1500 MG, UNK
     Route: 048
     Dates: start: 20081124

REACTIONS (1)
  - DRUG INTERACTION [None]
